FAERS Safety Report 5374063-3 (Version None)
Quarter: 2007Q2

REPORT INFORMATION
  Report Type: 
  Country: None (occurrence: None)
  Receive Date: 20070627
  Receipt Date: 20070618
  Transmission Date: 20071010
  Serious: Yes (Death, Hospitalization, Disabling, Other)
  Sender: FDA-Public Use
  Company Number: 2007SP009218

PATIENT
  Age: 60 Year
  Sex: Male
  Weight: 78.9259 kg

DRUGS (6)
  1. PEG-INTRON [Suspect]
     Indication: HEPATITIS C
     Dosage: 150 MCG;QW;SC
     Route: 058
     Dates: start: 20051125, end: 20060201
  2. RIBAVIRIN [Suspect]
     Indication: HEPATITIS C
     Dosage: 400 MG;BID;PO
     Route: 048
     Dates: start: 20051125, end: 20060201
  3. HYDROCHLOROTHIAZIDE [Concomitant]
  4. VITAMIN CAP [Concomitant]
  5. NADOLOL [Concomitant]
  6. NEXIUM [Concomitant]

REACTIONS (2)
  - HEPATIC FAILURE [None]
  - HEPATIC NEOPLASM MALIGNANT [None]
